FAERS Safety Report 8205195-X (Version None)
Quarter: 2012Q1

REPORT INFORMATION
  Report Type: 
  Country: None (occurrence: None)
  Receive Date: 20120313
  Receipt Date: 20120229
  Transmission Date: 20120608
  Serious: Yes (Other)
  Sender: FDA-Public Use
  Company Number: CA-ROCHE-1044770

PATIENT
  Sex: Female
  Weight: 47.67 kg

DRUGS (6)
  1. MABTHERA [Suspect]
     Indication: RHEUMATOID ARTHRITIS
     Route: 042
     Dates: start: 20080808, end: 20080819
  2. THYROID HORMONE [Concomitant]
  3. PROMETRIUM [Concomitant]
  4. ESTROGEN [Concomitant]
  5. ESTRADERM [Concomitant]
  6. ULTRADOL [Concomitant]

REACTIONS (3)
  - AMNESIA [None]
  - PHOTOSENSITIVITY REACTION [None]
  - MENTAL IMPAIRMENT [None]
